FAERS Safety Report 7032815-8 (Version None)
Quarter: 2010Q4

REPORT INFORMATION
  Report Type: 
  Country: None (occurrence: None)
  Receive Date: 20101005
  Receipt Date: 20100923
  Transmission Date: 20110411
  Serious: Yes (Other)
  Sender: FDA-Public Use
  Company Number: 1000016506

PATIENT
  Age: 37 Year
  Sex: Male

DRUGS (2)
  1. ESCITALOPRAM OXALATE [Suspect]
     Indication: DEPRESSION
     Dosage: 20 MG (20 MG, 1 IN 1 D), ORAL
     Route: 048
     Dates: start: 20100601
  2. CITALOPRAM HYDROBROMIDE [Concomitant]

REACTIONS (2)
  - TREMOR [None]
  - VISUAL FIELD DEFECT [None]
